FAERS Safety Report 12165746 (Version 1)
Quarter: 2016Q1

REPORT INFORMATION
  Report Type: Spontaneous
  Country: US (occurrence: US)
  Receive Date: 20160309
  Receipt Date: 20160309
  Transmission Date: 20160526
  Serious: No
  Sender: FDA-Public Use
  Company Number: US-GLAXOSMITHKLINE-US2016031738

PATIENT
  Sex: Male

DRUGS (2)
  1. BREO ELLIPTA [Suspect]
     Active Substance: FLUTICASONE FUROATE\VILANTEROL TRIFENATATE
     Indication: DYSPNOEA
  2. BREO ELLIPTA [Suspect]
     Active Substance: FLUTICASONE FUROATE\VILANTEROL TRIFENATATE
     Indication: EXPOSURE TO MOULD
     Dosage: 1 PUFF(S), QD
     Route: 055
     Dates: start: 20160302

REACTIONS (3)
  - Dysphonia [Unknown]
  - Condition aggravated [Unknown]
  - Burning sensation [Recovering/Resolving]

NARRATIVE: CASE EVENT DATE: 201603
